FAERS Safety Report 9691706 (Version 1)
Quarter: 2013Q4

REPORT INFORMATION
  Report Type: Spontaneous
  Country: US (occurrence: US)
  Receive Date: 20131115
  Receipt Date: 20131115
  Transmission Date: 20140711
  Serious: Yes (Other)
  Sender: FDA-Public Use
  Company Number: US-009507513-1311USA005528

PATIENT
  Sex: 0

DRUGS (1)
  1. SINGULAIR [Suspect]
     Indication: PRODUCT USED FOR UNKNOWN INDICATION
     Dosage: 1 TAB EVERY NIGHT
     Route: 048

REACTIONS (6)
  - Asthma [Unknown]
  - Activities of daily living impaired [Unknown]
  - Economic problem [Unknown]
  - No therapeutic response [Unknown]
  - Product quality issue [Unknown]
  - Product substitution issue [Unknown]
